FAERS Safety Report 11018180 (Version 2)
Quarter: 2015Q2

REPORT INFORMATION
  Report Type: Spontaneous
  Country: US (occurrence: US)
  Receive Date: 20150412
  Receipt Date: 20150524
  Transmission Date: 20150821
  Serious: Yes (Other)
  Sender: FDA-Public Use
  Company Number: US-JNJFOC-20131202553

PATIENT
  Sex: Female

DRUGS (4)
  1. BEVACIZUMAB [Suspect]
     Active Substance: BEVACIZUMAB
     Indication: MALIGNANT PERITONEAL NEOPLASM
     Route: 065
  2. BEVACIZUMAB [Suspect]
     Active Substance: BEVACIZUMAB
     Indication: OVARIAN CANCER RECURRENT
     Route: 065
  3. DOXIL [Suspect]
     Active Substance: DOXORUBICIN HYDROCHLORIDE
     Indication: MALIGNANT PERITONEAL NEOPLASM
     Dosage: 40 MG/M2 ON AN EVERY 4 WEEK SCHEDULE, ONE PATIENT WAS DOSE REDUCED AND RECEIVED 35 MG/M2
     Route: 042
     Dates: start: 2005, end: 2009
  4. DOXIL [Suspect]
     Active Substance: DOXORUBICIN HYDROCHLORIDE
     Indication: OVARIAN CANCER RECURRENT
     Dosage: 40 MG/M2 ON AN EVERY 4 WEEK SCHEDULE, ONE PATIENT WAS DOSE REDUCED AND RECEIVED 35 MG/M2
     Route: 042
     Dates: start: 2005, end: 2009

REACTIONS (5)
  - Stomatitis [Unknown]
  - Palmar-plantar erythrodysaesthesia syndrome [Unknown]
  - Infusion related reaction [Recovered/Resolved]
  - Mucosal inflammation [Unknown]
  - Product use issue [Unknown]
